FAERS Safety Report 10041689 (Version 1)
Quarter: 2014Q1

REPORT INFORMATION
  Report Type: Spontaneous
  Country: US (occurrence: None)
  Receive Date: 20140325
  Receipt Date: 20140325
  Transmission Date: 20141002
  Serious: Yes (Life-Threatening, Hospitalization, Disabling, Other)
  Sender: FDA-Public Use
  Company Number: 1713747-2014-00028

PATIENT
  Age: 68 Year
  Sex: Female

DRUGS (2)
  1. SALINE [Suspect]
     Dates: start: 20080917
  2. COMBISET , DIALYZER , FMC 2008K, CONCENTRATES (NATURALYTE AND GRANUFLO) [Concomitant]

REACTIONS (5)
  - Circulatory collapse [None]
  - Haemodialysis [None]
  - Ventricular tachycardia [None]
  - Electric shock [None]
  - Implantable defibrillator insertion [None]
